FAERS Safety Report 4316337-0 (Version None)
Quarter: 2004Q1

REPORT INFORMATION
  Report Type: 
  Country: None (occurrence: None)
  Receive Date: 20040311
  Receipt Date: 20040302
  Transmission Date: 20041129
  Serious: Yes (Hospitalization)
  Sender: FDA-Public Use
  Company Number: 2004CG00440

PATIENT
  Age: 17 Year
  Sex: Male
  Weight: 80 kg

DRUGS (14)
  1. OMEPRAZOLE [Suspect]
     Dates: start: 20040206
  2. AMIKACIN [Suspect]
     Dosage: 1.2 G DAILY
     Dates: start: 20040206, end: 20040217
  3. FRAXIPARINE [Suspect]
     Dosage: 0.4 IU DAILY
     Dates: start: 20040211
  4. CIPROFLOXACIN HCL [Suspect]
     Dosage: 1 G DAILY PO
     Route: 048
     Dates: start: 20040214, end: 20040216
  5. FORTUM [Suspect]
     Dates: start: 20040213
  6. PERFALGAN [Suspect]
     Dates: start: 20040208
  7. ROCEPHIN [Suspect]
     Dosage: 2 G DAILY
     Dates: start: 20040206, end: 20040213
  8. MIDAZOLAM HCL [Suspect]
     Dates: start: 20040206, end: 20040212
  9. SUFENTA [Suspect]
     Dates: start: 20040206, end: 20040212
  10. JOSACINE [Suspect]
     Dates: start: 20040212, end: 20040213
  11. JOSACINE [Suspect]
     Dates: start: 20040217
  12. TEGELINE [Suspect]
     Dates: start: 20040213, end: 20040214
  13. DIPRIVAN [Concomitant]
  14. ZOVIRAX [Concomitant]

REACTIONS (1)
  - CYTOLYTIC HEPATITIS [None]
